FAERS Safety Report 13769329 (Version 1)
Quarter: 2017Q3

REPORT INFORMATION
  Report Type: Spontaneous
  Country: PT (occurrence: PT)
  Receive Date: 20170719
  Receipt Date: 20170719
  Transmission Date: 20171127
  Serious: Yes (Death, Hospitalization, Other)
  Sender: FDA-Public Use
  Company Number: PT-GLAXOSMITHKLINE-PT2017GSK108907

PATIENT
  Age: 60 Year
  Sex: Female

DRUGS (12)
  1. OLMESARTAN MEDOXOMIL. [Suspect]
     Active Substance: OLMESARTAN MEDOXOMIL
  2. MEXAZOLAM [Suspect]
     Active Substance: MEXAZOLAM
  3. LANSOPRAZOLE. [Suspect]
     Active Substance: LANSOPRAZOLE
  4. TRAMADOL/ACETAMINOPHEN [Suspect]
     Active Substance: ACETAMINOPHEN\TRAMADOL
  5. DIAZEPAM. [Suspect]
     Active Substance: DIAZEPAM
  6. TRAZODONE [Suspect]
     Active Substance: TRAZODONE HYDROCHLORIDE
  7. PREGABALIN. [Suspect]
     Active Substance: PREGABALIN
  8. TAPENTADOL [Suspect]
     Active Substance: TAPENTADOL
  9. PREDNISOLONE. [Suspect]
     Active Substance: PREDNISOLONE
  10. METAMIZOLE [Suspect]
     Active Substance: METAMIZOLE
  11. FLUPIRTINE [Suspect]
     Active Substance: FLUPIRTINE
  12. IBUPROFEN. [Suspect]
     Active Substance: IBUPROFEN

REACTIONS (6)
  - Toxicity to various agents [Fatal]
  - Pyrexia [Unknown]
  - Septic shock [Fatal]
  - Agranulocytosis [Fatal]
  - Mouth ulceration [Unknown]
  - Dysphagia [Unknown]
